FAERS Safety Report 7078678-6 (Version None)
Quarter: 2010Q4

REPORT INFORMATION
  Report Type: 
  Country: None (occurrence: None)
  Receive Date: 20101101
  Receipt Date: 20101101
  Transmission Date: 20110411
  Serious: No
  Sender: FDA-Public Use
  Company Number: None

PATIENT
  Sex: Female
  Weight: 73.4827 kg

DRUGS (1)
  1. NORVASC [Suspect]
     Indication: HYPERTENSION
     Dosage: 10 MG ONCE PO DAY
     Route: 048
     Dates: start: 20090101

REACTIONS (5)
  - ABDOMINAL DISCOMFORT [None]
  - HEADACHE [None]
  - MYOPATHY [None]
  - PRODUCT SUBSTITUTION ISSUE [None]
  - RASH [None]
